FAERS Safety Report 13336139 (Version 1)
Quarter: 2017Q1

REPORT INFORMATION
  Report Type: Spontaneous
  Country: US (occurrence: US)
  Receive Date: 20170315
  Receipt Date: 20170315
  Transmission Date: 20170428
  Serious: No
  Sender: FDA-Public Use
  Company Number: US-SUN PHARMACEUTICAL INDUSTRIES LTD-2016US-117917

PATIENT

DRUGS (2)
  1. IBUPROFEN. [Concomitant]
     Active Substance: IBUPROFEN
     Indication: PRODUCT USED FOR UNKNOWN INDICATION
     Route: 065
  2. CLINDAMYCIN. [Suspect]
     Active Substance: CLINDAMYCIN
     Indication: PRODUCT USED FOR UNKNOWN INDICATION
     Dosage: 4 TIMES A DAY (SOMETIMES LESS LIKE 3 TIMES, DAILY
     Route: 065
     Dates: start: 201605

REACTIONS (6)
  - Musculoskeletal stiffness [Unknown]
  - Pollakiuria [Unknown]
  - Hypoaesthesia [Unknown]
  - Muscle spasms [Unknown]
  - Joint swelling [Unknown]
  - Sensory loss [Unknown]
